FAERS Safety Report 4430456-X (Version None)
Quarter: 2004Q3

REPORT INFORMATION
  Report Type: 
  Country: None (occurrence: None)
  Receive Date: 20040721
  Receipt Date: 20040219
  Transmission Date: 20050211
  Serious: Yes (Life-Threatening)
  Sender: FDA-Public Use
  Company Number: WAES 0301USA01094

PATIENT
  Age: 55 Year
  Sex: Female
  Weight: 72.5755 kg

DRUGS (8)
  1. VIOXX [Suspect]
     Indication: PAIN
     Dosage: 25MG/DAILY/PO
     Route: 048
     Dates: start: 20000125, end: 20021004
  2. EFFEXOR XR [Concomitant]
  3. LOTENSIN [Concomitant]
  4. REMERON [Concomitant]
  5. VALIUM [Concomitant]
  6. WELLBUTRIN [Concomitant]
  7. ACETAMINOPHEN (+) HYDROCODONE BI [Concomitant]
  8. ESTRADIOL [Concomitant]

REACTIONS (9)
  - ANAEMIA [None]
  - ATHEROSCLEROSIS [None]
  - DEPRESSION [None]
  - HYPERTENSION [None]
  - LIVER DISORDER [None]
  - OSTEOPOROSIS [None]
  - PAIN IN EXTREMITY [None]
  - POLYNEUROPATHY [None]
  - RENAL FAILURE [None]
